FAERS Safety Report 8589149-X (Version None)
Quarter: 2012Q3

REPORT INFORMATION
  Report Type: 
  Country: None (occurrence: None)
  Receive Date: 20120813
  Receipt Date: 20120809
  Transmission Date: 20120928
  Serious: No
  Sender: FDA-Public Use
  Company Number: US-PFIZER INC-2012132267

PATIENT
  Age: 56 Year
  Sex: Male
  Weight: 139 kg

DRUGS (21)
  1. CHANTIX [Suspect]
     Dosage: 1 MG, 2X/DAY
     Route: 048
     Dates: start: 20120201
  2. VITAMIN D [Concomitant]
     Indication: VITAMIN D DEFICIENCY
     Dosage: UNK
  3. PLAVIX [Concomitant]
     Dosage: 75 MG, DAILY AT NIGHT
  4. NORVASC [Concomitant]
     Dosage: 5 MG, DAILY
  5. NITROGLYCERIN [Concomitant]
     Indication: CARDIOVASCULAR EVENT PROPHYLAXIS
     Dosage: 0.4 MG, AS NEEDED
     Route: 060
  6. CRESTOR [Concomitant]
     Dosage: UNK
  7. KLONOPIN [Concomitant]
     Dosage: 0.5 MG, 4X/DAY
  8. ASCORBIC ACID [Concomitant]
     Dosage: 500 MG, DAILY
  9. LIRAGLUTIDE [Concomitant]
     Indication: TYPE 2 DIABETES MELLITUS
     Dosage: 18 MG, DAILY
  10. METFORMIN [Concomitant]
     Indication: TYPE 2 DIABETES MELLITUS
     Dosage: 350 MG, 2X/DAY
  11. SYMBICORT [Concomitant]
     Indication: LUNG DISORDER
     Dosage: ONE PUFF IN THE MORNING
  12. CYMBALTA [Concomitant]
     Dosage: 90 MG, DAILY
  13. FLONASE [Concomitant]
     Indication: DRY MOUTH
     Dosage: TWO SPRAYS AT NIGHT
  14. INSULIN [Concomitant]
     Indication: TYPE 2 DIABETES MELLITUS
     Dosage: UNK, DAILY AT NIGHT
  15. INSULIN GLARGINE [Concomitant]
     Indication: TYPE 2 DIABETES MELLITUS
     Dosage: 10 IU, DAILY
  16. VENTOLIN HFA [Concomitant]
     Indication: DYSPNOEA
     Dosage: TWO PUFFS, EVERY 6 HOURS
  17. ASPIRIN [Concomitant]
     Dosage: 325 MG, DAILY
  18. SYNTHROID [Concomitant]
     Indication: HYPOTHYROIDISM
     Dosage: 150 UG, DAILY BEFORE BREAKFAST
  19. FISH OIL [Concomitant]
     Dosage: 1000 MG, DAILY
  20. CHANTIX [Suspect]
     Indication: SMOKING CESSATION THERAPY
     Dosage: 0.5 MG, 1X/DAY
     Route: 048
     Dates: start: 20110201
  21. JANUVIA [Concomitant]
     Dosage: UNK

REACTIONS (3)
  - ABNORMAL DREAMS [None]
  - COUNTERFEIT DRUG ADMINISTERED [None]
  - DRUG INEFFECTIVE [None]
